FAERS Safety Report 6203477-4 (Version None)
Quarter: 2009Q2

REPORT INFORMATION
  Report Type: 
  Country: None (occurrence: None)
  Receive Date: 20090527
  Receipt Date: 20090519
  Transmission Date: 20091009
  Serious: Yes (Hospitalization, Other)
  Sender: FDA-Public Use
  Company Number: DE-BAYER-200921339GPV

PATIENT
  Age: 34 Year
  Sex: Female

DRUGS (10)
  1. ALEMTUZUMAB [Suspect]
     Indication: LIVER AND SMALL INTESTINE TRANSPLANT
     Dosage: TOTAL DAILY DOSE: 30 MG
     Route: 042
     Dates: start: 20031101, end: 20031101
  2. TACROLIMUS [Concomitant]
     Indication: LIVER AND SMALL INTESTINE TRANSPLANT
     Dosage: TROUGH LEVEL OF 15-20 NG/ML
  3. TACROLIMUS [Concomitant]
     Dosage: TROUGH LEVEL OF 8-10 NG/ML
  4. TACROLIMUS [Concomitant]
     Dosage: TROUGH LEVEL OF 5-6 NG/ML
  5. STEROIDS [Concomitant]
     Indication: LIVER AND SMALL INTESTINE TRANSPLANT
     Dosage: TOTAL DAILY DOSE: 100 MG
     Route: 042
  6. STEROIDS [Concomitant]
     Dosage: TOTAL DAILY DOSE: 250 MG
     Route: 042
  7. STEROIDS [Concomitant]
     Dosage: TOTAL DAILY DOSE: 500 MG
     Route: 042
  8. STEROIDS [Concomitant]
     Dosage: RAPID TAPERING
     Route: 065
  9. SULFAMETHOXAZOLE AND TRIMETHOPRIM [Concomitant]
     Indication: INFECTION PROPHYLAXIS
     Route: 065
  10. ACYCLOVIR [Concomitant]
     Indication: INFECTION PROPHYLAXIS
     Route: 065

REACTIONS (9)
  - ASPERGILLOSIS [None]
  - BRONCHOPULMONARY ASPERGILLOSIS [None]
  - CEREBRAL ASPERGILLOSIS [None]
  - CRANIAL NERVE PARALYSIS [None]
  - CYTOMEGALOVIRUS ENTERITIS [None]
  - CYTOMEGALOVIRUS INFECTION [None]
  - DIPLOPIA [None]
  - INTESTINE TRANSPLANT REJECTION [None]
  - SINUSITIS [None]
